FAERS Safety Report 13744749 (Version 1)
Quarter: 2017Q3

REPORT INFORMATION
  Report Type: Spontaneous
  Country: US (occurrence: US)
  Receive Date: 20170711
  Receipt Date: 20170711
  Transmission Date: 20171127
  Serious: Yes (Death)
  Sender: FDA-Public Use
  Company Number: None

PATIENT
  Age: 91 Year
  Sex: Male

DRUGS (11)
  1. PROCRIT [Suspect]
     Active Substance: ERYTHROPOIETIN
     Indication: CHRONIC KIDNEY DISEASE
     Dosage: OTHER DOSE:ML;OTHER FREQUENCY:TWICE MONTHLY;?
     Route: 058
  2. ASPIRIN. [Concomitant]
     Active Substance: ASPIRIN
  3. PROCRIT [Suspect]
     Active Substance: ERYTHROPOIETIN
     Indication: ANAEMIA
     Dosage: OTHER DOSE:ML;OTHER FREQUENCY:TWICE MONTHLY;?
     Route: 058
  4. CITALPRAM HYDROBROMIDE [Concomitant]
  5. CARVEDILOL. [Concomitant]
     Active Substance: CARVEDILOL
  6. CHOLECALCIFEROL [Concomitant]
     Active Substance: CHOLECALCIFEROL
  7. COQ10 [Concomitant]
     Active Substance: UBIDECARENONE
  8. CTANOCONALAMIN [Concomitant]
  9. EXELON [Concomitant]
     Active Substance: RIVASTIGMINE TARTRATE
  10. AMLODIPINE BESYLATE. [Concomitant]
     Active Substance: AMLODIPINE BESYLATE
  11. ATORVASTATIN CALCIUM. [Concomitant]
     Active Substance: ATORVASTATIN CALCIUM

REACTIONS (1)
  - Death [None]

NARRATIVE: CASE EVENT DATE: 20170707
